FAERS Safety Report 6885247-7 (Version None)
Quarter: 2010Q3

REPORT INFORMATION
  Report Type: 
  Country: None (occurrence: None)
  Receive Date: 20100729
  Receipt Date: 20100722
  Transmission Date: 20110219
  Serious: Yes (Hospitalization)
  Sender: FDA-Public Use
  Company Number: US-AMGEN-QUU426244

PATIENT
  Sex: Female

DRUGS (1)
  1. ENBREL [Suspect]
     Indication: RHEUMATOID ARTHRITIS
     Route: 058
     Dates: start: 20030201, end: 20100101

REACTIONS (9)
  - ABDOMINAL HERNIA [None]
  - CARDIAC FAILURE CONGESTIVE [None]
  - GENERALISED OEDEMA [None]
  - HAEMORRHOIDAL HAEMORRHAGE [None]
  - HAEMORRHOIDS [None]
  - MUSCULOSKELETAL STIFFNESS [None]
  - PAIN [None]
  - RASH [None]
  - SKIN BURNING SENSATION [None]
